FAERS Safety Report 7413218-0 (Version None)
Quarter: 2011Q2

REPORT INFORMATION
  Report Type: 
  Country: None (occurrence: None)
  Receive Date: 20110405
  Receipt Date: 20110317
  Transmission Date: 20111010
  Serious: Yes (Death)
  Sender: FDA-Public Use
  Company Number: 2011P1005316

PATIENT
  Age: 29 Year
  Sex: Male

DRUGS (4)
  1. CITALOPRAM HYDROBROMIDE [Suspect]
     Dosage: PO
     Route: 048
  2. METFORMIN HCL [Suspect]
     Dosage: PO
     Route: 048
  3. THIAZOLIIDINEDIONE [Suspect]
  4. CARBAMAZEPINE [Suspect]

REACTIONS (1)
  - COMPLETED SUICIDE [None]
